FAERS Safety Report 19882018 (Version 2)
Quarter: 2022Q3

REPORT INFORMATION
  Report Type: Spontaneous
  Country: FR (occurrence: FR)
  Receive Date: 20210924
  Receipt Date: 20220727
  Transmission Date: 20221026
  Serious: Yes (Other)
  Sender: FDA-Public Use
  Company Number: None

PATIENT
  Age: 35 Year
  Sex: Female
  Weight: 88 kg

DRUGS (6)
  1. QUTENZA [Suspect]
     Active Substance: CAPSAICIN
     Indication: Neuralgia
     Dosage: 0.5 DOSAGE FORM
     Route: 065
     Dates: start: 20210113, end: 20210113
  2. QUTENZA [Suspect]
     Active Substance: CAPSAICIN
     Dosage: 1 DOSAGE FORM
     Route: 065
     Dates: start: 20210407, end: 20210407
  3. QUTENZA [Suspect]
     Active Substance: CAPSAICIN
     Dosage: 1 DOSAGE FORM
     Route: 065
     Dates: start: 20210707, end: 20210707
  4. CYCLOPHOSPHAMIDE\EPIRUBICIN HYDROCHLORIDE\FLUOROURACIL [Concomitant]
     Active Substance: CYCLOPHOSPHAMIDE\EPIRUBICIN HYDROCHLORIDE\FLUOROURACIL
     Indication: Chemotherapy
     Dosage: UNK
     Route: 065
     Dates: end: 20190807
  5. TAXOL [Concomitant]
     Active Substance: PACLITAXEL
     Indication: Chemotherapy
     Dosage: UNK
     Route: 065
     Dates: start: 20190829, end: 20191023
  6. TAMOXIFEN [Concomitant]
     Active Substance: TAMOXIFEN
     Indication: Radiotherapy
     Dosage: UNK
     Route: 065
     Dates: start: 202001, end: 202012

REACTIONS (3)
  - Burning sensation [Recovered/Resolved with Sequelae]
  - Application site burn [Recovered/Resolved with Sequelae]
  - Burns third degree [Recovered/Resolved with Sequelae]

NARRATIVE: CASE EVENT DATE: 20210407
